FAERS Safety Report 8205898-7 (Version None)
Quarter: 2012Q1

REPORT INFORMATION
  Report Type: 
  Country: None (occurrence: None)
  Receive Date: 20120313
  Receipt Date: 20120306
  Transmission Date: 20120608
  Serious: Yes (Life-Threatening, Hospitalization, Other)
  Sender: FDA-Public Use
  Company Number: GXKR2012DE001070

PATIENT

DRUGS (3)
  1. SPIRONOLACTONE [Interacting]
     Dosage: 12.5 MG DAILY PER OS, BREAK: 01-16 FEB 2011, REEXPOSURE 17-21 FEB 2011: 2X50 MG DAILY
     Route: 048
     Dates: start: 20101101, end: 20110131
  2. RAMIPRIL [Interacting]
     Dosage: 2X5 MG DAILY PER OS, BREAK: 01FEB-27FEB2011, SINCE 28FEB2011 DOSAGE REDUCED: AT LAST 2X2.5 MG DAILY
     Route: 048
     Dates: start: 20110120
  3. FUROSEMIDE [Suspect]
     Dosage: 160MG DAILY, 01-21 FEB 2011 120MG DAILY, BREAK, SINCE 03MAR2011 80 MG DAILY PER OS
     Route: 048
     Dates: start: 20050101

REACTIONS (1)
  - RENAL FAILURE ACUTE [None]
